FAERS Safety Report 23115735 (Version 3)
Quarter: 2023Q4

REPORT INFORMATION
  Report Type: Spontaneous
  Country: JP (occurrence: JP)
  Receive Date: 20231027
  Receipt Date: 20231205
  Transmission Date: 20240110
  Serious: Yes (Hospitalization, Other)
  Sender: FDA-Public Use
  Company Number: JP-PFIZER INC-PV202300151777

PATIENT
  Age: 58 Year
  Sex: Female

DRUGS (1)
  1. ATGAM [Suspect]
     Active Substance: EQUINE THYMOCYTE IMMUNE GLOBULIN
     Dosage: UNK
     Route: 041
     Dates: start: 20230829

REACTIONS (4)
  - Neutrophil count decreased [Recovered/Resolved]
  - Drug ineffective [Unknown]
  - Lymphocyte count decreased [Unknown]
  - Transaminases increased [Unknown]

NARRATIVE: CASE EVENT DATE: 20230101
